FAERS Safety Report 12549097 (Version 1)
Quarter: 2016Q3

REPORT INFORMATION
  Report Type: Report from Study
  Country: JP (occurrence: JP)
  Receive Date: 20160712
  Receipt Date: 20160712
  Transmission Date: 20161109
  Serious: Yes (Hospitalization)
  Sender: FDA-Public Use
  Company Number: JP-SA-2016SA124271

PATIENT
  Age: 52 Year
  Sex: Male
  Weight: 71.5 kg

DRUGS (7)
  1. PLAVIX [Suspect]
     Active Substance: CLOPIDOGREL BISULFATE
     Indication: CEREBROVASCULAR ACCIDENT
     Route: 065
     Dates: start: 20130220, end: 20131001
  2. LOBU [Concomitant]
     Active Substance: LOBUCAVIR
     Dates: start: 20130715, end: 20130716
  3. LOBU [Concomitant]
     Active Substance: LOBUCAVIR
     Dates: start: 20130928, end: 20130928
  4. NEXIUM [Concomitant]
     Active Substance: ESOMEPRAZOLE MAGNESIUM
  5. PLAVIX [Suspect]
     Active Substance: CLOPIDOGREL BISULFATE
     Indication: CEREBROVASCULAR ACCIDENT
     Route: 065
     Dates: start: 20131002
  6. MUCOSTA [Concomitant]
     Active Substance: REBAMIPIDE
     Dates: start: 20130327, end: 20130404
  7. MUCOSTA [Concomitant]
     Active Substance: REBAMIPIDE
     Dates: start: 20130715, end: 20130716

REACTIONS (1)
  - Spinal cord infarction [Recovered/Resolved with Sequelae]

NARRATIVE: CASE EVENT DATE: 20130928
